FAERS Safety Report 8937142 (Version 1)
Quarter: 2012Q4

REPORT INFORMATION
  Report Type: Spontaneous
  Country: BE (occurrence: None)
  Receive Date: 20121121
  Receipt Date: 20121121
  Transmission Date: 20130627
  Serious: Yes (Death)
  Sender: FDA-Public Use
  Company Number: BE-BANPHARM-20120344

PATIENT
  Age: 61 Year
  Sex: Female

DRUGS (1)
  1. NAPROXEN [Suspect]
     Indication: ARTHRITIS

REACTIONS (18)
  - Toxic epidermal necrolysis [None]
  - Rhabdomyolysis [None]
  - Cardiac arrest [None]
  - Renal failure [None]
  - Respiratory failure [None]
  - Hepatic failure [None]
  - Chest pain [None]
  - Hypotension [None]
  - Diarrhoea [None]
  - Restlessness [None]
  - Sinus tachycardia [None]
  - Pallor [None]
  - Thirst [None]
  - Bradycardia [None]
  - Multi-organ failure [None]
  - Lymphocyte transformation test positive [None]
  - Renal injury [None]
  - Disseminated intravascular coagulation [None]
